FAERS Safety Report 10657334 (Version 1)
Quarter: 2014Q4

REPORT INFORMATION
  Report Type: Report from Study
  Country: CA (occurrence: CA)
  Receive Date: 20141217
  Receipt Date: 20141217
  Transmission Date: 20150529
  Serious: Yes (Other)
  Sender: FDA-Public Use
  Company Number: CA-JNJFOC-20141210162

PATIENT
  Age: 58 Year
  Sex: Male
  Weight: 66.1 kg

DRUGS (5)
  1. ARTHROTEC [Concomitant]
     Active Substance: DICLOFENAC SODIUM\MISOPROSTOL
     Route: 065
  2. REMICADE [Suspect]
     Active Substance: INFLIXIMAB
     Indication: IRITIS
     Route: 042
     Dates: start: 20120910
  3. REMICADE [Suspect]
     Active Substance: INFLIXIMAB
     Indication: ANKYLOSING SPONDYLITIS
     Route: 042
     Dates: start: 20141209
  4. REMICADE [Suspect]
     Active Substance: INFLIXIMAB
     Indication: ANKYLOSING SPONDYLITIS
     Route: 042
     Dates: start: 20120910
  5. REMICADE [Suspect]
     Active Substance: INFLIXIMAB
     Indication: IRITIS
     Route: 042
     Dates: start: 20141209

REACTIONS (4)
  - Arthritis reactive [Unknown]
  - Product use issue [Unknown]
  - Nasopharyngitis [Unknown]
  - Gastroenteritis [Unknown]

NARRATIVE: CASE EVENT DATE: 201412
